FAERS Safety Report 8593679-4 (Version None)
Quarter: 2012Q3

REPORT INFORMATION
  Report Type: 
  Country: None (occurrence: None)
  Receive Date: 20120814
  Receipt Date: 20120801
  Transmission Date: 20120928
  Serious: No
  Sender: FDA-Public Use
  Company Number: US-ASTRAZENECA-2012SE54836

PATIENT
  Age: 32 Year
  Sex: Female
  Weight: 63.5 kg

DRUGS (8)
  1. NEXIUM [Suspect]
     Indication: GASTROOESOPHAGEAL REFLUX DISEASE
     Route: 048
     Dates: start: 20100101
  2. PAXIL [Concomitant]
     Indication: ANTIDEPRESSANT THERAPY
  3. AMYTIPTYLINE [Concomitant]
     Indication: MIGRAINE
  4. NEXIUM [Suspect]
     Route: 048
     Dates: start: 20100101
  5. BENTYL [Concomitant]
     Indication: IRRITABLE BOWEL SYNDROME
  6. XANAX [Concomitant]
     Indication: PANIC ATTACK
  7. GEODON [Concomitant]
     Indication: BIPOLAR DISORDER
  8. PHENERGAN [Concomitant]
     Indication: NAUSEA

REACTIONS (4)
  - IRRITABLE BOWEL SYNDROME [None]
  - OFF LABEL USE [None]
  - POLYCYSTIC OVARIES [None]
  - DYSPNOEA [None]
